FAERS Safety Report 6200640-3 (Version None)
Quarter: 2009Q2

REPORT INFORMATION
  Report Type: 
  Country: None (occurrence: None)
  Receive Date: 20090522
  Receipt Date: 20090513
  Transmission Date: 20091009
  Serious: Yes (Other)
  Sender: FDA-Public Use
  Company Number: TR-AMGEN-US347669

PATIENT
  Age: 38 Year
  Sex: Female
  Weight: 60 kg

DRUGS (1)
  1. ENBREL [Suspect]
     Indication: STILL'S DISEASE ADULT ONSET
     Route: 058
     Dates: start: 20080501

REACTIONS (2)
  - ATROPHY [None]
  - SPLEEN DISORDER [None]
